FAERS Safety Report 17565894 (Version 1)
Quarter: 2020Q1

REPORT INFORMATION
  Report Type: Spontaneous
  Country: US (occurrence: US)
  Receive Date: 20200310
  Receipt Date: 20200310
  Transmission Date: 20200409
  Serious: Yes (Life-Threatening, Hospitalization, Disabling, Other)
  Sender: FDA-Public Use
  Company Number: None

PATIENT
  Age: 43 Year
  Sex: Female
  Weight: 78.3 kg

DRUGS (32)
  1. CELBREX [Concomitant]
  2. VALIUM [Concomitant]
     Active Substance: DIAZEPAM
  3. VITAMIN B COMPLEX [Concomitant]
     Active Substance: CYANOCOBALAMIN\DEXPANTHENOL\NIACINAMIDE\PYRIDOXINE HYDROCHLORIDE\RIBOFLAVIN 5^-PHOSPHATE SODIUM\THIAMINE HYDROCHLORIDE\VITAMIN B COMPLEX
  4. MS CONTIN [Suspect]
     Active Substance: MORPHINE SULFATE
     Indication: ANXIETY
     Dosage: ?          QUANTITY:5 TABLET(S);?
     Route: 048
     Dates: start: 20100101, end: 20200306
  5. DEXILANT [Concomitant]
     Active Substance: DEXLANSOPRAZOLE
  6. VOLTAREN [Suspect]
     Active Substance: DICLOFENAC SODIUM
  7. KEPPRA [Suspect]
     Active Substance: LEVETIRACETAM
  8. ABURTAL [Concomitant]
  9. LYRICA [Concomitant]
     Active Substance: PREGABALIN
  10. IMATREX [Concomitant]
  11. MS CONTIN [Suspect]
     Active Substance: MORPHINE SULFATE
     Indication: SYSTEMIC LUPUS ERYTHEMATOSUS
     Dosage: ?          QUANTITY:5 TABLET(S);?
     Route: 048
     Dates: start: 20100101, end: 20200306
  12. MECLIXZINE [Concomitant]
  13. ZINC. [Concomitant]
     Active Substance: ZINC
  14. MS CONTIN [Suspect]
     Active Substance: MORPHINE SULFATE
     Indication: PAIN
     Dosage: ?          QUANTITY:5 TABLET(S);?
     Route: 048
     Dates: start: 20100101, end: 20200306
  15. VALIUM [Suspect]
     Active Substance: DIAZEPAM
  16. PREDNISONE. [Concomitant]
     Active Substance: PREDNISONE
  17. NASNANEX [Concomitant]
  18. MAGNESIUM [Concomitant]
     Active Substance: MAGNESIUM
  19. FOLIC ACID. [Concomitant]
     Active Substance: FOLIC ACID
  20. A [Concomitant]
  21. AMITRIPTYLINE [Concomitant]
     Active Substance: AMITRIPTYLINE
  22. POTASSIUM [Concomitant]
     Active Substance: POTASSIUM
  23. LYRICA [Suspect]
     Active Substance: PREGABALIN
  24. ELDERBERRY [Concomitant]
     Active Substance: HERBALS
  25. VAT [Concomitant]
  26. CDB OIL [Concomitant]
  27. MS CONTIN [Suspect]
     Active Substance: MORPHINE SULFATE
     Indication: RHEUMATOID ARTHRITIS
     Dosage: ?          QUANTITY:5 TABLET(S);?
     Route: 048
     Dates: start: 20100101, end: 20200306
  28. OXYCODONE [Suspect]
     Active Substance: OXYCODONE
  29. BACLOFIN [Concomitant]
  30. MS CONTIN [Concomitant]
     Active Substance: MORPHINE SULFATE
  31. OXYCODONE [Concomitant]
     Active Substance: OXYCODONE
  32. TURMIC [Concomitant]

REACTIONS (10)
  - Cerebrovascular accident [None]
  - Tremor [None]
  - Discomfort [None]
  - Seizure [None]
  - Pain [None]
  - Hypertension [None]
  - Ill-defined disorder [None]
  - Drug withdrawal syndrome [None]
  - Stress [None]
  - Quality of life decreased [None]

NARRATIVE: CASE EVENT DATE: 20130801
